FAERS Safety Report 4300537-X (Version None)
Quarter: 2004Q1

REPORT INFORMATION
  Report Type: 
  Country: None (occurrence: None)
  Receive Date: 20040220
  Receipt Date: 20040212
  Transmission Date: 20041129
  Serious: Yes (Hospitalization, Other)
  Sender: FDA-Public Use
  Company Number: PHNU2004DE00889

PATIENT
  Age: 58 Year
  Sex: Male

DRUGS (1)
  1. GLEEVEC [Suspect]
     Indication: CHRONIC MYELOID LEUKAEMIA
     Dosage: 400MG/DAY
     Route: 048
     Dates: start: 20030901, end: 20040102

REACTIONS (3)
  - ANTI-PLATELET ANTIBODY [None]
  - ANTI-PLATELET ANTIBODY POSITIVE [None]
  - AUTOIMMUNE THROMBOCYTOPENIA [None]
